FAERS Safety Report 4640121-1 (Version None)
Quarter: 2005Q2

REPORT INFORMATION
  Report Type: 
  Country: None (occurrence: None)
  Receive Date: 20050420
  Receipt Date: 20050208
  Transmission Date: 20051028
  Serious: Yes (Hospitalization)
  Sender: FDA-Public Use
  Company Number: FR-ROCHE-395131

PATIENT
  Age: 44 Year
  Sex: Female

DRUGS (5)
  1. ROVALCYTE [Suspect]
     Route: 065
     Dates: end: 20041202
  2. BACTRIM [Concomitant]
     Indication: PROPHYLAXIS
     Route: 065
     Dates: end: 20041202
  3. CELLCEPT [Concomitant]
     Route: 065
     Dates: end: 20041021
  4. PROGRAF [Concomitant]
     Indication: DRUG USE FOR UNKNOWN INDICATION
     Dosage: DOSAGE REGIMEN REPORTED AS 2.5 MG TWICE.
     Route: 065
  5. CORTICOIDS NOS [Concomitant]
     Indication: DRUG USE FOR UNKNOWN INDICATION
     Route: 065

REACTIONS (3)
  - AGRANULOCYTOSIS [None]
  - PANCREATITIS ACUTE [None]
  - WHITE BLOOD CELL COUNT DECREASED [None]
